FAERS Safety Report 5025955-6 (Version None)
Quarter: 2006Q2

REPORT INFORMATION
  Report Type: 
  Country: None (occurrence: None)
  Receive Date: 20060612
  Receipt Date: 20060612
  Transmission Date: 20061013
  Serious: Yes (Hospitalization)
  Sender: FDA-Public Use
  Company Number: None

PATIENT
  Age: 47 Year
  Sex: Male
  Weight: 86.1834 kg

DRUGS (1)
  1. BIAXIN XL [Suspect]
     Indication: SINUSITIS
     Dosage: 500 MG TAB TWICE PER DAY PO
     Route: 048
     Dates: start: 20041201, end: 20041215

REACTIONS (2)
  - OTOTOXICITY [None]
  - TINNITUS [None]
